FAERS Safety Report 8013061-8 (Version None)
Quarter: 2011Q4

REPORT INFORMATION
  Report Type: 
  Country: None (occurrence: None)
  Receive Date: 20111229
  Receipt Date: 20111222
  Transmission Date: 20120403
  Serious: Yes (Other)
  Sender: FDA-Public Use
  Company Number: US-PFIZER INC-2009251513

PATIENT
  Sex: Male

DRUGS (2)
  1. XALATAN [Suspect]
     Dosage: UNK
  2. PRISTIQ [Suspect]
     Dosage: UNK

REACTIONS (1)
  - DEPRESSION [None]
